FAERS Safety Report 19047098 (Version 1)
Quarter: 2021Q1

REPORT INFORMATION
  Report Type: Spontaneous
  Country: CA (occurrence: CA)
  Receive Date: 20210323
  Receipt Date: 20210323
  Transmission Date: 20210420
  Serious: Yes (Disabling)
  Sender: FDA-Public Use
  Company Number: CA-ORGANON-1609CAN014007

PATIENT
  Age: 72 Year
  Sex: Female
  Weight: 65.76 kg

DRUGS (2)
  1. TRAMADOL HYDROCHLORIDE. [Concomitant]
     Active Substance: TRAMADOL HYDROCHLORIDE
     Indication: FIBROMYALGIA
     Dosage: UNK
  2. NASONEX [Suspect]
     Active Substance: MOMETASONE FUROATE
     Indication: SINUSITIS
     Dosage: 2 SPRAYS IN EACH NOSTRIL, NOSE SPRAY
     Route: 045
     Dates: start: 20160123, end: 20160127

REACTIONS (10)
  - Pain [Recovering/Resolving]
  - Oropharyngeal pain [Recovering/Resolving]
  - Asthenia [Recovering/Resolving]
  - Influenza like illness [Recovering/Resolving]
  - Feeling abnormal [Recovering/Resolving]
  - Vision blurred [Recovering/Resolving]
  - Abdominal pain upper [Recovering/Resolving]
  - Gingival bleeding [Recovering/Resolving]
  - Parosmia [Recovering/Resolving]
  - Headache [Recovering/Resolving]
